FAERS Safety Report 6541855-4 (Version None)
Quarter: 2010Q1

REPORT INFORMATION
  Report Type: 
  Country: None (occurrence: None)
  Receive Date: 20100119
  Receipt Date: 20100116
  Transmission Date: 20100710
  Serious: Yes (Death, Hospitalization, Other)
  Sender: FDA-Public Use
  Company Number: PHHY2009BE55934

PATIENT
  Age: 65 Year
  Sex: Male

DRUGS (4)
  1. EXJADE [Suspect]
     Indication: MYELOFIBROSIS
     Dosage: UNK
     Route: 048
  2. EXJADE [Suspect]
     Indication: IRON OVERLOAD
  3. CORDARONE [Concomitant]
     Indication: ARRHYTHMIA
  4. BUMEX [Concomitant]

REACTIONS (22)
  - ABDOMINAL ABSCESS [None]
  - ACUTE ABDOMEN [None]
  - ACUTE CORONARY SYNDROME [None]
  - APPENDICITIS [None]
  - ARTERIAL THROMBOSIS [None]
  - ARTHRALGIA [None]
  - COLECTOMY [None]
  - DEATH [None]
  - DRUG TOXICITY [None]
  - GASTRIC DISORDER [None]
  - GENERAL PHYSICAL HEALTH DETERIORATION [None]
  - ILEAL ULCER [None]
  - ILEECTOMY [None]
  - INFLAMMATION [None]
  - INTESTINAL ULCER PERFORATION [None]
  - LARGE INTESTINAL ULCER [None]
  - PERITONITIS [None]
  - PNEUMOCYSTIS JIROVECI PNEUMONIA [None]
  - PROCTALGIA [None]
  - RESPIRATORY TRACT INFECTION [None]
  - SEPTIC SHOCK [None]
  - SURGERY [None]
